FAERS Safety Report 6713665-6 (Version None)
Quarter: 2010Q2

REPORT INFORMATION
  Report Type: 
  Country: None (occurrence: None)
  Receive Date: 20100506
  Receipt Date: 20100427
  Transmission Date: 20101027
  Serious: Yes (Other)
  Sender: FDA-Public Use
  Company Number: US-SANOFI-AVENTIS-2010SA025138

PATIENT
  Age: 58 Year
  Sex: Male

DRUGS (3)
  1. LANTUS [Suspect]
     Dosage: DOSE:80 UNIT(S)
     Route: 058
     Dates: start: 20000101
  2. ACTOS [Concomitant]
  3. GLUCOVANCE [Concomitant]

REACTIONS (5)
  - EYE HAEMORRHAGE [None]
  - FIBROMYALGIA [None]
  - INJECTION SITE PAIN [None]
  - PAIN [None]
  - VISION BLURRED [None]
